APPROVED DRUG PRODUCT: CHLOROTHIAZIDE AND RESERPINE
Active Ingredient: CHLOROTHIAZIDE; RESERPINE
Strength: 250MG;0.125MG
Dosage Form/Route: TABLET;ORAL
Application: A088557 | Product #001
Applicant: HIKMA PHARMACEUTICALS LLC
Approved: Dec 22, 1983 | RLD: No | RS: No | Type: DISCN